FAERS Safety Report 19940525 (Version 2)
Quarter: 2021Q4

REPORT INFORMATION
  Report Type: Spontaneous
  Country: US (occurrence: US)
  Receive Date: 20211011
  Receipt Date: 20211130
  Transmission Date: 20220303
  Serious: Yes (Other)
  Sender: FDA-Public Use
  Company Number: US-TEVA-2021-US-1965354

PATIENT
  Age: 66 Year
  Sex: Male
  Weight: 108.8 kg

DRUGS (9)
  1. AMLODIPINE\VALSARTAN [Suspect]
     Active Substance: AMLODIPINE\VALSARTAN
     Indication: Hypertension
     Dosage: 1 DOSAGE FORMS DAILY; AMLODIPINE 25 MG/ VALSARTAN 320 MG
     Route: 048
     Dates: start: 20110319, end: 201106
  2. AMLODIPINE\VALSARTAN [Suspect]
     Active Substance: AMLODIPINE\VALSARTAN
     Dosage: 1 DOSAGE FORMS DAILY; AMLODIPINE 10 MG/ VALSARTAN 160MG
     Route: 048
     Dates: start: 20110718, end: 201203
  3. AMLODIPINE\VALSARTAN [Suspect]
     Active Substance: AMLODIPINE\VALSARTAN
     Dosage: 1 DOSAGE FORMS DAILY; AMLODIPINE 10 MG/ VALSARTAN 160MG
     Route: 048
     Dates: start: 20130718, end: 201308
  4. VALSARTAN [Suspect]
     Active Substance: VALSARTAN
     Indication: Hypertension
     Route: 048
     Dates: start: 20101203, end: 201108
  5. AMLODIPINE\VALSARTAN [Suspect]
     Active Substance: AMLODIPINE\VALSARTAN
     Indication: Hypertension
     Dosage: 1 DOSAGE FORMS DAILY; AMLODIPINE 10 MG/ VALSARTAN 160 MG
     Route: 048
     Dates: start: 20160503, end: 201802
  6. AMLODIPINE\VALSARTAN [Suspect]
     Active Substance: AMLODIPINE\VALSARTAN
     Indication: Hypertension
     Dosage: 1 DOSAGE FORMS DAILY; AMLODIPINE 10 MG/ VALSARTAN 160 MG
     Route: 048
     Dates: start: 20180208, end: 201805
  7. LOSARTAN POTASSIUM [Suspect]
     Active Substance: LOSARTAN POTASSIUM
     Indication: Hypertension
     Route: 065
     Dates: start: 20180322, end: 201804
  8. LOSARTAN POTASSIUM [Suspect]
     Active Substance: LOSARTAN POTASSIUM
     Route: 065
     Dates: start: 20180409, end: 201807
  9. LOSARTAN POTASSIUM [Suspect]
     Active Substance: LOSARTAN POTASSIUM
     Indication: Hypertension
     Route: 065
     Dates: start: 20180706, end: 201903

REACTIONS (2)
  - Prostate cancer [Unknown]
  - Small intestine carcinoma [Unknown]
